FAERS Safety Report 8321130-8 (Version None)
Quarter: 2012Q2

REPORT INFORMATION
  Report Type: 
  Country: None (occurrence: None)
  Receive Date: 20120430
  Receipt Date: 20120423
  Transmission Date: 20120825
  Serious: Yes (Other)
  Sender: FDA-Public Use
  Company Number: US-JNJFOC-20120411898

PATIENT
  Sex: Male

DRUGS (1)
  1. LEVAQUIN [Suspect]
     Indication: INFLUENZA
     Route: 065

REACTIONS (3)
  - PERIPHERAL COLDNESS [None]
  - GOUT [None]
  - ARTHRALGIA [None]
